FAERS Safety Report 18967149 (Version 1)
Quarter: 2021Q1

REPORT INFORMATION
  Report Type: Spontaneous
  Country: PT (occurrence: PT)
  Receive Date: 20210304
  Receipt Date: 20210304
  Transmission Date: 20210420
  Serious: Yes (Other)
  Sender: FDA-Public Use
  Company Number: PT-TEVA-2021-PT-1885365

PATIENT
  Age: 83 Year
  Sex: Female
  Weight: 103 kg

DRUGS (17)
  1. INSULIN LISPRO PROTAMINE [Concomitant]
     Active Substance: INSULIN LISPRO
  2. LOSARTAN GP [Concomitant]
     Dosage: 50 MG
  3. VIGANTOL [Concomitant]
  4. CONCOR [Concomitant]
     Active Substance: BISOPROLOL FUMARATE
     Dosage: 5 MG
  5. TOPAMAX [Concomitant]
     Active Substance: TOPIRAMATE
  6. ALPRAZOLAM. [Concomitant]
     Active Substance: ALPRAZOLAM
  7. ZYLORIC [Concomitant]
     Active Substance: ALLOPURINOL
  8. COTRIMOXAZOL RATIOPHARM [Suspect]
     Active Substance: SULFAMETHOXAZOLE\TRIMETHOPRIM
     Indication: CYSTITIS
     Dosage: 1 OUT OF 12/12 HOURS
     Route: 048
     Dates: start: 20210201, end: 20210201
  9. FERROUS SULFATE. [Concomitant]
     Active Substance: FERROUS SULFATE
  10. CALCIUM CARBONATE. [Concomitant]
     Active Substance: CALCIUM CARBONATE
  11. URSODEOXYCHOLIC ACID [Concomitant]
     Active Substance: URSODIOL
  12. FUROSEMIDE. [Concomitant]
     Active Substance: FUROSEMIDE
  13. FURADANTINA MC [Concomitant]
  14. FOLICIL [Concomitant]
     Active Substance: FOLIC ACID
  15. PROZAC [Concomitant]
     Active Substance: FLUOXETINE HYDROCHLORIDE
  16. ZEMPLAR [Concomitant]
     Active Substance: PARICALCITOL
  17. DULAGLUTIDE. [Concomitant]
     Active Substance: DULAGLUTIDE

REACTIONS (2)
  - Angioedema [Recovered/Resolved]
  - Dysphonia [Recovered/Resolved]

NARRATIVE: CASE EVENT DATE: 20210201
